FAERS Safety Report 8179678-5 (Version None)
Quarter: 2012Q1

REPORT INFORMATION
  Report Type: 
  Country: None (occurrence: None)
  Receive Date: 20120302
  Receipt Date: 20120225
  Transmission Date: 20120608
  Serious: Yes (Death)
  Sender: FDA-Public Use
  Company Number: MY-CELGENEUS-101-50794-12022102

PATIENT
  Age: 57 Year
  Sex: Male

DRUGS (1)
  1. VIDAZA [Suspect]
     Dosage: 100 MILLIGRAM
     Route: 065

REACTIONS (2)
  - NEUTROPENIC SEPSIS [None]
  - NEUTROPENIA [None]
